FAERS Safety Report 9251344 (Version 1)
Quarter: 2013Q1

REPORT INFORMATION
  Report Type: Spontaneous
  Country: US (occurrence: None)
  Receive Date: 20130305
  Receipt Date: 20130305
  Transmission Date: 20140127
  Serious: Yes (Other)
  Sender: FDA-Public Use
  Company Number: 163-21880-12082237

PATIENT
  Age: 79 Year
  Sex: Male
  Weight: 161 kg

DRUGS (11)
  1. REVLIMID (LENALIDOMIDE) (25 MILLIGRAM, CAPSULES) [Suspect]
     Indication: PLASMA CELL MYELOMA
     Route: 048
     Dates: start: 20110211
  2. ACYCLOVIR (ACICLOVIR) [Concomitant]
  3. ASPIRIN (ACETYLSALICYLIC ACID) [Concomitant]
  4. LOPRESSOR (METOPROLOL TARTRATE) [Concomitant]
  5. LOTREL (LOTREL) [Concomitant]
  6. PERCOCET (OXYCOCET) [Concomitant]
  7. THORAZINE (CHLORPROMAZINE HYDROCHLORIDE) [Concomitant]
  8. VITAMIN B1 (THIAMINE HYDROCHLORIDE) [Concomitant]
  9. VITAMIN B12 (CYANOCOBALAMIN) [Concomitant]
  10. VITAMIN D (ERGOCALCIFEROL) [Concomitant]
  11. DEXAMETHASONE (DEXAMETHASONE) [Concomitant]

REACTIONS (2)
  - Neuropathy peripheral [None]
  - Respiratory tract infection viral [None]
